FAERS Safety Report 8440478-X (Version None)
Quarter: 2012Q2

REPORT INFORMATION
  Report Type: 
  Country: None (occurrence: None)
  Receive Date: 20120615
  Receipt Date: 20120614
  Transmission Date: 20120825
  Serious: Yes (Death, Life-Threatening)
  Sender: FDA-Public Use
  Company Number: BG-GLAXOSMITHKLINE-B0682710A

PATIENT
  Sex: Male
  Weight: 87 kg

DRUGS (3)
  1. ALLOPURINOL [Concomitant]
     Indication: PROPHYLAXIS
     Dosage: 300MG PER DAY
     Route: 048
     Dates: start: 20101008
  2. ENALAPRIL [Concomitant]
     Indication: HYPERTENSION
     Dosage: 40MG PER DAY
     Route: 048
     Dates: start: 19910101
  3. CHLORAMBUCIL [Suspect]
     Indication: CHRONIC LYMPHOCYTIC LEUKAEMIA
     Dosage: 52MG PER DAY
     Route: 065
     Dates: start: 20101011, end: 20101027

REACTIONS (4)
  - ENTEROBACTER SEPSIS [None]
  - ACUTE RESPIRATORY FAILURE [None]
  - PNEUMONIA [None]
  - NEUTROPENIA [None]
